FAERS Safety Report 12727185 (Version 2)
Quarter: 2016Q3

REPORT INFORMATION
  Report Type: Spontaneous
  Country: US (occurrence: US)
  Receive Date: 20160909
  Receipt Date: 20160926
  Transmission Date: 20161109
  Serious: No
  Sender: FDA-Public Use
  Company Number: US-ASTRAZENECA-2016SE95133

PATIENT
  Age: 66 Year
  Sex: Female

DRUGS (3)
  1. NEXIUM 24HR [Suspect]
     Active Substance: ESOMEPRAZOLE MAGNESIUM
     Route: 048
  2. VITAMINS [Concomitant]
     Active Substance: VITAMINS
  3. NEXIUM [Suspect]
     Active Substance: ESOMEPRAZOLE MAGNESIUM
     Route: 048
     Dates: end: 201607

REACTIONS (3)
  - Osteoarthritis [Not Recovered/Not Resolved]
  - Product use issue [Unknown]
  - Osteoporosis [Not Recovered/Not Resolved]
